FAERS Safety Report 8809173 (Version 1)
Quarter: 2012Q4

REPORT INFORMATION
  Report Type: 
  Country: SE (occurrence: SE)
  Receive Date: 20120926
  Receipt Date: 20120926
  Transmission Date: 20130627
  Serious: Yes (Other)
  Sender: FDA-Public Use
  Company Number: PHHY2012SE081171

PATIENT
  Age: 68 Year
  Sex: Male

DRUGS (2)
  1. GLIVEC [Suspect]
     Indication: LEUKAEMIA
     Dosage: 400 mg, one tablet per day
     Dates: start: 1998
  2. GLIVEC [Suspect]
     Dosage: 400 mg, daily
     Dates: start: 20081001, end: 20081020

REACTIONS (3)
  - Skin disorder [Recovered/Resolved with Sequelae]
  - Dermatitis allergic [Recovered/Resolved with Sequelae]
  - Skin exfoliation [None]
